APPROVED DRUG PRODUCT: SODIUM POLYSTYRENE SULFONATE
Active Ingredient: SODIUM POLYSTYRENE SULFONATE
Strength: 454GM/BOT
Dosage Form/Route: POWDER;ORAL, RECTAL
Application: A040909 | Product #001
Applicant: CITRUSPHRMA LLC
Approved: Dec 3, 2008 | RLD: No | RS: No | Type: DISCN